FAERS Safety Report 6033796-6 (Version None)
Quarter: 2009Q1

REPORT INFORMATION
  Report Type: 
  Country: None (occurrence: None)
  Receive Date: 20090112
  Receipt Date: 20090109
  Transmission Date: 20090719
  Serious: Yes (Hospitalization)
  Sender: FDA-Public Use
  Company Number: US-JNJFOC-20080905938

PATIENT
  Sex: Male
  Weight: 90.27 kg

DRUGS (6)
  1. LEVAQUIN [Suspect]
     Route: 048
  2. LEVAQUIN [Suspect]
     Indication: BRONCHITIS
     Route: 048
  3. ZOCOR [Concomitant]
     Indication: BLOOD CHOLESTEROL
     Route: 048
  4. THEROBEC PLUS [Concomitant]
     Indication: VITAMIN SUPPLEMENTATION
     Route: 048
  5. PAXIL [Concomitant]
     Indication: DEPRESSION
     Dosage: EVERY OTHER DAY
     Route: 048
  6. PREDNISONE TAB [Concomitant]
     Indication: RESPIRATORY DISORDER
     Route: 048

REACTIONS (5)
  - DRUG INEFFECTIVE [None]
  - HOSPITALISATION [None]
  - LOSS OF CONSCIOUSNESS [None]
  - TENDON DISORDER [None]
  - TENDONITIS [None]
